FAERS Safety Report 10413249 (Version 1)
Quarter: 2014Q2

REPORT INFORMATION
  Report Type: Spontaneous
  Country: US (occurrence: None)
  Receive Date: 20140530
  Receipt Date: 20140530
  Transmission Date: 20141212
  Serious: No
  Sender: FDA-Public Use
  Company Number: 227144

PATIENT
  Sex: Female

DRUGS (1)
  1. PICATO (INGENOL MEBUTATE) (0.015 %, GEL) [Suspect]

REACTIONS (2)
  - Application site erythema [None]
  - Erythema [None]
